FAERS Safety Report 9084219 (Version 1)
Quarter: 2013Q1

REPORT INFORMATION
  Report Type: Spontaneous
  Country: DE (occurrence: DE)
  Receive Date: 20130131
  Receipt Date: 20130131
  Transmission Date: 20140127
  Serious: Yes (Other)
  Sender: FDA-Public Use
  Company Number: DE-BAYER-2013-012434

PATIENT
  Sex: Male

DRUGS (1)
  1. AVALOX [Suspect]
     Dosage: UNK

REACTIONS (2)
  - Hypothermia [None]
  - Fatigue [None]
